FAERS Safety Report 22520632 (Version 1)
Quarter: 2023Q2

REPORT INFORMATION
  Report Type: Spontaneous
  Country: US (occurrence: US)
  Receive Date: 20230605
  Receipt Date: 20230605
  Transmission Date: 20230722
  Serious: Yes (Hospitalization)
  Sender: FDA-Public Use
  Company Number: US-MYLANLABS-2023M1058085

PATIENT
  Age: 29 Year
  Sex: Male

DRUGS (1)
  1. MERCAPTOPURINE [Suspect]
     Active Substance: MERCAPTOPURINE
     Indication: Crohn^s disease
     Dosage: UNK
     Route: 065

REACTIONS (4)
  - Nodular regenerative hyperplasia [Recovering/Resolving]
  - Haemorrhage [Recovering/Resolving]
  - Non-cirrhotic portal hypertension [Recovering/Resolving]
  - Stomal varices [Recovering/Resolving]
